FAERS Safety Report 4303429-5 (Version None)
Quarter: 2004Q1

REPORT INFORMATION
  Report Type: 
  Country: None (occurrence: None)
  Receive Date: 20040223
  Receipt Date: 20040218
  Transmission Date: 20041129
  Serious: Yes (Life-Threatening)
  Sender: FDA-Public Use
  Company Number: MK200401-0334-2

PATIENT
  Age: 56 Year
  Sex: Female

DRUGS (1)
  1. ANAFRANIL [Suspect]

REACTIONS (2)
  - ANTIPHOSPHOLIPID SYNDROME [None]
  - PULMONARY THROMBOSIS [None]
